FAERS Safety Report 4804120-9 (Version None)
Quarter: 2005Q4

REPORT INFORMATION
  Report Type: 
  Country: None (occurrence: None)
  Receive Date: 20051020
  Receipt Date: 20051019
  Transmission Date: 20060501
  Serious: Yes (Other)
  Sender: FDA-Public Use
  Company Number: US-BRISTOL-MYERS SQUIBB COMPANY-13149760

PATIENT
  Age: 48 Year
  Sex: Female

DRUGS (15)
  1. CYCLOPHOSPHAMIDE [Suspect]
     Indication: BREAST CANCER
     Dates: start: 20050620, end: 20050620
  2. ADRIAMYCIN PFS [Suspect]
     Indication: BREAST CANCER
     Dates: start: 20050620, end: 20050620
  3. LISINOPRIL [Concomitant]
  4. ATORVASTATIN [Concomitant]
  5. CALCIUM GLUCONATE [Concomitant]
  6. ALENDRONATE [Concomitant]
  7. FENOFIBRATE [Concomitant]
  8. BELLADONNA [Concomitant]
  9. ERGOTAMINE TARTRATE [Concomitant]
  10. PHENOBARBITAL TAB [Concomitant]
  11. ALBUTEROL [Concomitant]
  12. ONDANSETRON HCL [Concomitant]
  13. LORAZEPAM [Concomitant]
  14. CETIRIZINE HCL [Concomitant]
  15. GRANISETRON HCL [Concomitant]

REACTIONS (1)
  - LEUKOPENIA [None]
